FAERS Safety Report 4989157-1 (Version None)
Quarter: 2006Q1

REPORT INFORMATION
  Report Type: 
  Country: None (occurrence: None)
  Receive Date: 20060314
  Receipt Date: 20051230
  Transmission Date: 20060701
  Serious: Yes (Other)
  Sender: FDA-Public Use
  Company Number: 200610034BCC

PATIENT
  Age: 52 Year
  Sex: Female
  Weight: 61.6892 kg

DRUGS (2)
  1. ALEVE [Suspect]
     Dosage: 220 MG, QD, ORAL, 220 MG, ONCE, ORAL
     Route: 048
     Dates: start: 20040101
  2. ORTHO-PREFEST [Concomitant]

REACTIONS (2)
  - ABDOMINAL PAIN UPPER [None]
  - GASTRITIS EROSIVE [None]
